FAERS Safety Report 10133868 (Version 1)
Quarter: 2014Q2

REPORT INFORMATION
  Report Type: Spontaneous
  Country: AT (occurrence: AT)
  Receive Date: 20140428
  Receipt Date: 20140428
  Transmission Date: 20141212
  Serious: Yes (Other)
  Sender: FDA-Public Use
  Company Number: PHHY2014AT048644

PATIENT
  Age: 55 Year
  Sex: Female
  Weight: 68 kg

DRUGS (1)
  1. EBETAXEL EBEWE [Suspect]
     Indication: CHEMOTHERAPY
     Dosage: 311.33 MG, CYCLIC
     Route: 042
     Dates: start: 20140328, end: 20140328

REACTIONS (3)
  - Restlessness [Recovered/Resolved]
  - Dyspnoea [Recovered/Resolved]
  - Flushing [Recovered/Resolved]
